FAERS Safety Report 7295906-2 (Version None)
Quarter: 2011Q1

REPORT INFORMATION
  Report Type: 
  Country: None (occurrence: None)
  Receive Date: 20110216
  Receipt Date: 20110113
  Transmission Date: 20110831
  Serious: No
  Sender: FDA-Public Use
  Company Number: US-ABBOTT-11P-163-0696923-00

PATIENT
  Sex: Male
  Weight: 120.31 kg

DRUGS (2)
  1. SIMCOR [Suspect]
     Indication: HIGH DENSITY LIPOPROTEIN DECREASED
     Dosage: DAILY AT BEDTIME
     Dates: start: 20101118
  2. ASPIRIN [Concomitant]
     Indication: PRODUCT USED FOR UNKNOWN INDICATION
     Dosage: OCCASIONALLY

REACTIONS (3)
  - PARAESTHESIA [None]
  - FLUSHING [None]
  - SKIN BURNING SENSATION [None]
